FAERS Safety Report 12748814 (Version 1)
Quarter: 2016Q3

REPORT INFORMATION
  Report Type: Report from Study
  Country: US (occurrence: US)
  Receive Date: 20160915
  Receipt Date: 20160915
  Transmission Date: 20161109
  Serious: Yes (Other)
  Sender: FDA-Public Use
  Company Number: US-CELGENEUS-USA-2014120729

PATIENT

DRUGS (4)
  1. POMALYST [Suspect]
     Active Substance: POMALIDOMIDE
     Indication: AMYLOIDOSIS
     Dosage: 2MG-3MG
     Route: 048
  2. ASPIRIN. [Concomitant]
     Active Substance: ASPIRIN
     Indication: THROMBOSIS PROPHYLAXIS
     Route: 065
  3. POMALYST [Suspect]
     Active Substance: POMALIDOMIDE
     Route: 048
  4. DEXAMETHASONE. [Suspect]
     Active Substance: DEXAMETHASONE
     Indication: AMYLOIDOSIS
     Route: 048

REACTIONS (10)
  - Pneumonia [Unknown]
  - Fatigue [Unknown]
  - Rash [Unknown]
  - Amyloidosis [Unknown]
  - Blood creatinine increased [Unknown]
  - Upper respiratory tract infection [Unknown]
  - Brain natriuretic peptide increased [Unknown]
  - Bone marrow failure [Unknown]
  - Neutropenia [Unknown]
  - Anaemia [Unknown]
